FAERS Safety Report 19438587 (Version 1)
Quarter: 2021Q2

REPORT INFORMATION
  Report Type: Spontaneous
  Country: PL (occurrence: PL)
  Receive Date: 20210619
  Receipt Date: 20210619
  Transmission Date: 20210717
  Serious: Yes (Other)
  Sender: FDA-Public Use
  Company Number: PL-YILING-PL-2021-YPL-00055

PATIENT

DRUGS (2)
  1. ACYCLOVIR. [Suspect]
     Active Substance: ACYCLOVIR
     Indication: PRODUCT USED FOR UNKNOWN INDICATION
  2. NOT APPLICABLE [Concomitant]
     Active Substance: HYOSCYAMINE SULFATE
     Route: 048

REACTIONS (1)
  - Neurotoxicity [Recovered/Resolved]
